FAERS Safety Report 9819261 (Version 1)
Quarter: 2014Q1

REPORT INFORMATION
  Report Type: Report from Study
  Country: BR (occurrence: BR)
  Receive Date: 20140115
  Receipt Date: 20140115
  Transmission Date: 20141002
  Serious: Yes (Hospitalization, Other)
  Sender: FDA-Public Use
  Company Number: PHHY2014BR003524

PATIENT
  Age: 77 Year
  Sex: Female

DRUGS (1)
  1. ACLASTA [Suspect]
     Indication: OSTEOPOROSIS
     Dosage: 5 MG, UNK
     Route: 042
     Dates: start: 20130228

REACTIONS (8)
  - Kidney infection [Recovering/Resolving]
  - Infarction [Recovering/Resolving]
  - Road traffic accident [Recovering/Resolving]
  - Rib fracture [Recovering/Resolving]
  - Labyrinthitis [Recovering/Resolving]
  - Drug-induced liver injury [Recovering/Resolving]
  - Chest pain [Recovering/Resolving]
  - Blood pressure increased [Recovering/Resolving]
